FAERS Safety Report 20935392 (Version 4)
Quarter: 2022Q2

REPORT INFORMATION
  Report Type: Report from Study
  Country: GB (occurrence: GB)
  Receive Date: 20220609
  Receipt Date: 20220629
  Transmission Date: 20220720
  Serious: Yes (Other)
  Sender: FDA-Public Use
  Company Number: GB-SAMSUNG BIOEPIS-SB-2022-13458

PATIENT
  Age: 69 Year
  Sex: Female

DRUGS (1)
  1. IMRALDI [Suspect]
     Active Substance: ADALIMUMAB
     Indication: Rheumatoid arthritis
     Route: 058
     Dates: start: 20211005

REACTIONS (4)
  - Rheumatoid arthritis [Recovering/Resolving]
  - Paraesthesia [Recovering/Resolving]
  - Gait disturbance [Unknown]
  - Crying [Unknown]

NARRATIVE: CASE EVENT DATE: 20220517
